FAERS Safety Report 22127001 (Version 2)
Quarter: 2023Q1

REPORT INFORMATION
  Report Type: Spontaneous
  Country: CZ (occurrence: CZ)
  Receive Date: 20230322
  Receipt Date: 20230324
  Transmission Date: 20230418
  Serious: Yes (Hospitalization, Other)
  Sender: FDA-Public Use
  Company Number: CZ-009507513-2303CZE002707

PATIENT
  Age: 79 Year
  Sex: Male
  Weight: 65 kg

DRUGS (1)
  1. LAGEVRIO [Suspect]
     Active Substance: MOLNUPIRAVIR
     Indication: COVID-19 treatment
     Dosage: UNK
     Route: 048
     Dates: start: 20230226

REACTIONS (13)
  - Chronic obstructive pulmonary disease [Unknown]
  - Acute kidney injury [Unknown]
  - Dehydration [Unknown]
  - Hypophagia [Unknown]
  - Abdominal pain upper [Unknown]
  - Apathy [Unknown]
  - Blood pressure decreased [Recovering/Resolving]
  - Feeding disorder [Unknown]
  - Somnolence [Unknown]
  - Skin turgor decreased [Unknown]
  - Alanine aminotransferase increased [Unknown]
  - Aspartate aminotransferase increased [Unknown]
  - Decreased appetite [Unknown]

NARRATIVE: CASE EVENT DATE: 20230303
